FAERS Safety Report 4978334-1 (Version None)
Quarter: 2006Q2

REPORT INFORMATION
  Report Type: 
  Country: None (occurrence: None)
  Receive Date: 20060417
  Receipt Date: 20060330
  Transmission Date: 20061013
  Serious: Yes (Death)
  Sender: FDA-Public Use
  Company Number: 2006S1002841

PATIENT
  Age: 78 Year
  Sex: Male

DRUGS (2)
  1. CLOZAPINE [Suspect]
     Indication: PSYCHOTIC DISORDER
     Dosage: 12.5 MG; QAM; ORAL; 25 MG;  HS; ORAL
     Route: 048
     Dates: start: 20060301, end: 20060323
  2. CLOZAPINE [Suspect]
     Indication: PSYCHOTIC DISORDER
     Dosage: 12.5 MG; QAM; ORAL; 25 MG;  HS; ORAL
     Route: 048
     Dates: start: 20060301, end: 20060323

REACTIONS (1)
  - DEATH [None]
